FAERS Safety Report 6377779-5 (Version None)
Quarter: 2009Q3

REPORT INFORMATION
  Report Type: 
  Country: None (occurrence: None)
  Receive Date: 20090925
  Receipt Date: 20090915
  Transmission Date: 20100115
  Serious: Yes (Death)
  Sender: FDA-Public Use
  Company Number: US-ELI_LILLY_AND_COMPANY-US200909003491

PATIENT
  Sex: Female

DRUGS (1)
  1. ZYPREXA [Suspect]
     Indication: DEMENTIA ALZHEIMER'S TYPE
     Dates: start: 20080101

REACTIONS (5)
  - DECREASED APPETITE [None]
  - DEMENTIA [None]
  - MALNUTRITION [None]
  - MULTI-ORGAN FAILURE [None]
  - OFF LABEL USE [None]
